FAERS Safety Report 14772793 (Version 1)
Quarter: 2018Q2

REPORT INFORMATION
  Report Type: Spontaneous
  Country: FR (occurrence: FR)
  Receive Date: 20180418
  Receipt Date: 20180418
  Transmission Date: 20180711
  Serious: Yes (Other)
  Sender: FDA-Public Use
  Company Number: FR-MERCK KGAA-2045916

PATIENT
  Age: 57 Year
  Sex: Female

DRUGS (1)
  1. NOVOTHYROX [Suspect]
     Active Substance: LEVOTHYROXINE SODIUM
     Indication: AUTOIMMUNE THYROIDITIS

REACTIONS (32)
  - Vertigo [None]
  - Myalgia [None]
  - Palpitations [None]
  - Disturbance in attention [None]
  - Thyroxine free decreased [None]
  - Fatigue [None]
  - Alopecia [None]
  - Insomnia [None]
  - Amnesia [None]
  - Hyperthyroidism [None]
  - Depressed mood [None]
  - Agitation [None]
  - Tremor [None]
  - Blood thyroid stimulating hormone increased [None]
  - Blood thyroid stimulating hormone decreased [None]
  - Mental disorder [None]
  - Muscle spasms [None]
  - Decreased interest [None]
  - Hyperhidrosis [None]
  - Hypothyroidism [None]
  - Hypokinesia [None]
  - Visual impairment [None]
  - Weight decreased [None]
  - Mood swings [None]
  - Irritability [None]
  - Social problem [None]
  - Anxiety [None]
  - Headache [None]
  - Arthralgia [None]
  - Feeling abnormal [None]
  - Personal relationship issue [None]
  - Nightmare [None]
